FAERS Safety Report 20570400 (Version 2)
Quarter: 2022Q1

REPORT INFORMATION
  Report Type: Report from Study
  Country: CA (occurrence: CA)
  Receive Date: 20220309
  Receipt Date: 20220310
  Transmission Date: 20220424
  Serious: Yes (Other)
  Sender: FDA-Public Use
  Company Number: CA-JNJFOC-20220310394

PATIENT
  Age: 15 Year
  Sex: Male
  Weight: 64 kg

DRUGS (2)
  1. REMICADE [Suspect]
     Active Substance: INFLIXIMAB
     Indication: Colitis ulcerative
     Dosage: ON 01-MAR-2022, THE PATIENT RECEIVED 11TH INFLIXIMAB INFUSION FOR DOSE OF 500 MG AND PARTIAL MAYO WA
     Route: 042
     Dates: start: 20210316
  2. REMICADE [Suspect]
     Active Substance: INFLIXIMAB
     Route: 042

REACTIONS (3)
  - Appendicitis [Unknown]
  - Frequent bowel movements [Unknown]
  - General physical health deterioration [Unknown]

NARRATIVE: CASE EVENT DATE: 20220228
